FAERS Safety Report 7721798-0 (Version None)
Quarter: 2011Q3

REPORT INFORMATION
  Report Type: 
  Country: None (occurrence: None)
  Receive Date: 20110831
  Receipt Date: 20110829
  Transmission Date: 20111222
  Serious: Yes (Other)
  Sender: FDA-Public Use
  Company Number: US-VERTEX PHARMACEUTICALS INC.-AE-2011-000863

PATIENT
  Sex: Male
  Weight: 124.85 kg

DRUGS (9)
  1. KADIAN [Concomitant]
  2. M.V.I. [Concomitant]
  3. RIBASPHERE [Concomitant]
     Indication: HEPATITIS C
     Dates: start: 20110728
  4. ZOLOFT [Concomitant]
  5. INCIVEK [Suspect]
     Indication: HEPATITIS C
     Dates: start: 20110728
  6. PEGASYS [Concomitant]
     Indication: HEPATITIS C
     Route: 058
     Dates: start: 20110728
  7. XIFAXAN [Concomitant]
  8. OXYCODONE HCL [Concomitant]
  9. SPIRONOLACTONE [Concomitant]

REACTIONS (2)
  - HEPATIC ENCEPHALOPATHY [None]
  - DRUG DOSE OMISSION [None]
